FAERS Safety Report 9167749 (Version 3)
Quarter: 2013Q2

REPORT INFORMATION
  Report Type: Spontaneous
  Country: US (occurrence: US)
  Receive Date: 20130318
  Receipt Date: 20130430
  Transmission Date: 20140414
  Serious: No
  Sender: FDA-Public Use
  Company Number: US-PFIZER INC-2013086280

PATIENT
  Age: 59 Year
  Sex: Female
  Weight: 79.37 kg

DRUGS (5)
  1. XALATAN [Suspect]
     Indication: GLAUCOMA
     Dosage: UNK, 1X/DAY
  2. XALATAN [Suspect]
     Dosage: ONE DROP ONCE A DAY AT BEDTIME BOTH EYES
     Route: 061
     Dates: start: 20020209, end: 201211
  3. LIPITOR [Suspect]
     Indication: BLOOD CHOLESTEROL INCREASED
     Dosage: 10 MG, 1X/DAY
  4. GLIPIZIDE [Concomitant]
     Indication: DIABETES MELLITUS
     Dosage: 10 MG, 2X/DAY
  5. NOVOLOG [Concomitant]
     Indication: DIABETES MELLITUS
     Dosage: 20 MG, 2X/DAY

REACTIONS (2)
  - Nasopharyngitis [Recovering/Resolving]
  - Malaise [Recovering/Resolving]
